FAERS Safety Report 19906698 (Version 1)
Quarter: 2021Q3

REPORT INFORMATION
  Report Type: Spontaneous
  Country: US (occurrence: US)
  Receive Date: 20210930
  Receipt Date: 20210930
  Transmission Date: 20211014
  Serious: No
  Sender: FDA-Public Use
  Company Number: None

PATIENT

DRUGS (2)
  1. ADALAT CC [Suspect]
     Active Substance: NIFEDIPINE
  2. PROCARDIA XL [Suspect]
     Active Substance: NIFEDIPINE

REACTIONS (3)
  - Product communication issue [None]
  - Transcription medication error [None]
  - Product dispensing error [None]
